FAERS Safety Report 8271783-8 (Version None)
Quarter: 2012Q2

REPORT INFORMATION
  Report Type: 
  Country: None (occurrence: None)
  Receive Date: 20120410
  Receipt Date: 20120327
  Transmission Date: 20120825
  Serious: No
  Sender: FDA-Public Use
  Company Number: US-PFIZER INC-2012078702

PATIENT
  Sex: Female
  Weight: 108.84 kg

DRUGS (2)
  1. ATORVASTATIN AND AMLODIPINE [Suspect]
     Dosage: 10/80 MG, DAILY
     Dates: start: 20120201
  2. GLIPIZIDE [Concomitant]
     Indication: DIABETES MELLITUS
     Dosage: 2X/DAY

REACTIONS (3)
  - DIZZINESS [None]
  - HYPERSENSITIVITY [None]
  - PAIN IN EXTREMITY [None]
